FAERS Safety Report 21441240 (Version 1)
Quarter: 2022Q4

REPORT INFORMATION
  Report Type: Spontaneous
  Country: US (occurrence: None)
  Receive Date: 20221010
  Receipt Date: 20221010
  Transmission Date: 20230112
  Serious: Yes (Hospitalization, Disabling)
  Sender: FDA-Public Use
  Company Number: None

PATIENT
  Age: 20 Year
  Sex: Female
  Weight: 69.75 kg

DRUGS (1)
  1. METHYLPHENIDATE [Suspect]
     Active Substance: METHYLPHENIDATE
     Indication: Attention deficit hyperactivity disorder
     Route: 048
     Dates: start: 20220418, end: 20221006

REACTIONS (5)
  - Insomnia [None]
  - Feeding disorder [None]
  - Heart rate increased [None]
  - Angina pectoris [None]
  - Product substitution issue [None]

NARRATIVE: CASE EVENT DATE: 20220901
